FAERS Safety Report 8409855-7 (Version None)
Quarter: 2012Q2

REPORT INFORMATION
  Report Type: 
  Country: None (occurrence: None)
  Receive Date: 20120605
  Receipt Date: 20120530
  Transmission Date: 20120825
  Serious: No
  Sender: FDA-Public Use
  Company Number: US-PFIZER INC-2012130455

PATIENT
  Sex: Female
  Weight: 62.585 kg

DRUGS (2)
  1. LISINOPRIL [Concomitant]
     Indication: HYPERTENSION
     Dosage: UNK
  2. PRISTIQ [Suspect]
     Indication: DEPRESSION
     Dosage: 50 MG, 1X/DAY
     Route: 048
     Dates: start: 20120401

REACTIONS (3)
  - THERAPEUTIC RESPONSE UNEXPECTED [None]
  - ABNORMAL DREAMS [None]
  - POOR QUALITY SLEEP [None]
